FAERS Safety Report 14657113 (Version 5)
Quarter: 2019Q1

REPORT INFORMATION
  Report Type: Spontaneous
  Country: US (occurrence: US)
  Receive Date: 20180319
  Receipt Date: 20190319
  Transmission Date: 20190417
  Serious: Yes (Hospitalization)
  Sender: FDA-Public Use
  Company Number: US-ACTELION-A-NJ2018-169171

PATIENT
  Age: 9 Month
  Sex: Female
  Weight: 8.64 kg

DRUGS (24)
  1. RISPERIDONE. [Concomitant]
     Active Substance: RISPERIDONE
     Dosage: 0.1 MG, QD
     Route: 048
  2. AZITHROMYCIN ANHYDROUS. [Concomitant]
     Active Substance: AZITHROMYCIN ANHYDROUS
     Dosage: 35.2 MG, QD
  3. LORAZEPAM. [Concomitant]
     Active Substance: LORAZEPAM
     Dosage: 3 MG, Q6HRS
  4. TADALAFIL. [Suspect]
     Active Substance: TADALAFIL
     Indication: PRODUCT USED FOR UNKNOWN INDICATION
     Dosage: 11 MG, QD
     Route: 048
     Dates: start: 20180815
  5. HYDROXYCHLOROQUINE SULFATE. [Concomitant]
     Active Substance: HYDROXYCHLOROQUINE SULFATE
     Dosage: 37.5 MG, QD
  6. BUDESONIDE. [Concomitant]
     Active Substance: BUDESONIDE
     Dosage: 1 MG, Q12HRS
  7. AQUAPHOR [Concomitant]
     Active Substance: PETROLATUM
     Dosage: UNK, PRN
     Route: 061
  8. NYSTATIN. [Concomitant]
     Active Substance: NYSTATIN
     Dosage: UNK, PRN
     Route: 061
  9. TRACLEER [Suspect]
     Active Substance: BOSENTAN
     Indication: PULMONARY ARTERIAL HYPERTENSION
     Dosage: 4.8 MG, BID
     Route: 048
     Dates: start: 20171223
  10. TRACLEER [Suspect]
     Active Substance: BOSENTAN
     Dosage: 10 UNK, BID
     Route: 048
  11. IBUPROFEN. [Concomitant]
     Active Substance: IBUPROFEN
     Dosage: 70 MG, PRN
  12. CLONIDINE. [Concomitant]
     Active Substance: CLONIDINE
     Dosage: 0.3 MG, Q5DAYS
     Route: 062
  13. RANITIDINE. [Concomitant]
     Active Substance: RANITIDINE
     Dosage: 15 MG, BID
  14. PREDNISOLONE. [Concomitant]
     Active Substance: PREDNISOLONE
     Dosage: 7.2 MG, BID
  15. CHLOROTHIAZIDE. [Concomitant]
     Active Substance: CHLOROTHIAZIDE
     Dosage: 140 MG, BID
  16. SIMETHICONE (DIMETHICONE) [Concomitant]
     Active Substance: DIMETHICONE
     Dosage: 40 MG, PRN
  17. TRACLEER [Suspect]
     Active Substance: BOSENTAN
     Dosage: 8.125 MG, Q12HRS
     Route: 048
  18. ACETAMINOPHEN. [Concomitant]
     Active Substance: ACETAMINOPHEN
     Dosage: 80 MG, PRN
  19. SPIRONOLACTONE. [Concomitant]
     Active Substance: SPIRONOLACTONE
     Dosage: 7 MG, Q12HRS
  20. METHADONE [Concomitant]
     Active Substance: METHADONE HYDROCHLORIDE
     Dosage: 3 MG, Q6HRS
  21. OMEPRAZOLE. [Concomitant]
     Active Substance: OMEPRAZOLE
     Dosage: 7.2 MG, QD
  22. MIRALAX [Concomitant]
     Active Substance: POLYETHYLENE GLYCOL 3350
     Dosage: 4.25 G, PRN
  23. SODIUM CHLORIDE. [Concomitant]
     Active Substance: SODIUM CHLORIDE
     Dosage: 15.2 MEQ, UNK
  24. BACITRACIN. [Concomitant]
     Active Substance: BACITRACIN
     Dosage: UNK, PRN
     Route: 061

REACTIONS (9)
  - White blood cell count increased [Unknown]
  - Hospitalisation [Unknown]
  - Metabolic alkalosis [Unknown]
  - Hypochloraemia [Unknown]
  - Pneumonia aspiration [Unknown]
  - Agitation [Unknown]
  - Failure to thrive [Unknown]
  - Supraventricular tachycardia [Unknown]
  - Product use issue [Unknown]

NARRATIVE: CASE EVENT DATE: 20180401
